FAERS Safety Report 15283276 (Version 5)
Quarter: 2020Q2

REPORT INFORMATION
  Report Type: Report from Study
  Country: CA (occurrence: CA)
  Receive Date: 20180816
  Receipt Date: 20200604
  Transmission Date: 20200713
  Serious: Yes (Hospitalization)
  Sender: FDA-Public Use
  Company Number: CA-ROCHE-2167576

PATIENT
  Age: 83 Year
  Sex: Female
  Weight: 56.8 kg

DRUGS (20)
  1. ATORVASTATIN [Concomitant]
     Active Substance: ATORVASTATIN
     Route: 048
     Dates: start: 20120808
  2. HYDROMORPH CONTIN [Concomitant]
     Active Substance: HYDROMORPHONE
     Indication: BACK PAIN
     Route: 048
     Dates: start: 20180805
  3. DALTEPARIN [Concomitant]
     Active Substance: DALTEPARIN
     Dosage: DOSE 5000 U
     Route: 058
     Dates: start: 20180805
  4. DENOSUMAB [Concomitant]
     Active Substance: DENOSUMAB
     Dosage: UNITS: OTHER
     Route: 042
     Dates: start: 20170906
  5. ACETAMINOPHENE [Concomitant]
     Active Substance: ACETAMINOPHEN
     Route: 048
     Dates: start: 20180808
  6. HYDROMORPHONE [Concomitant]
     Active Substance: HYDROMORPHONE
     Route: 048
     Dates: start: 20180706
  7. DEXAMETHASON [DEXAMETHASONE] [Concomitant]
     Active Substance: DEXAMETHASONE
     Indication: DECREASED APPETITE
     Route: 048
     Dates: start: 20180808
  8. ZOPICLONE [Concomitant]
     Active Substance: ZOPICLONE
     Indication: INSOMNIA
     Route: 048
     Dates: start: 20180804
  9. LORAZEPAM. [Concomitant]
     Active Substance: LORAZEPAM
     Route: 048
     Dates: start: 20180424
  10. COLACE [Concomitant]
     Active Substance: DOCUSATE SODIUM
     Dosage: STOOL SOFTENER
     Route: 048
     Dates: start: 20180806
  11. HALOPERIDOL. [Concomitant]
     Active Substance: HALOPERIDOL
     Dosage: SEDATIVE
     Route: 042
     Dates: start: 20180809
  12. MIDAZOLAM. [Concomitant]
     Active Substance: MIDAZOLAM
     Dosage: SEDATIVE
     Route: 042
     Dates: start: 20180809
  13. ONDASETRON [ONDANSETRON] [Concomitant]
     Route: 042
     Dates: start: 20180805, end: 20180805
  14. ATEZOLIZUMAB. [Suspect]
     Active Substance: ATEZOLIZUMAB
     Indication: NON-SMALL CELL LUNG CANCER
     Dosage: DATE OF MOST RECENT DOSE (1200 MG) OF ATEZOLIZUMAB ADMINISTERED PRIOR TO SAE ONSET: 17/JUL/2018.
     Route: 042
  15. FOLIC ACID. [Concomitant]
     Active Substance: FOLIC ACID
     Route: 048
     Dates: start: 201803
  16. SCOPOLAMINE HYDROBROMIDE. [Concomitant]
     Active Substance: SCOPOLAMINE HYDROBROMIDE
     Route: 058
     Dates: start: 20180809
  17. AMLODIPINE [Concomitant]
     Active Substance: AMLODIPINE BESYLATE
     Route: 048
     Dates: start: 20160929
  18. SENOKOT [Concomitant]
     Active Substance: SENNOSIDES
     Indication: CONSTIPATION
     Route: 048
     Dates: start: 20180804
  19. THYROXINE [Concomitant]
     Active Substance: LEVOTHYROXINE
     Dosage: EVERY DAY
     Route: 048
     Dates: start: 20100413
  20. METHOTRIMEPRAZINE [LEVOMEPROMAZINE] [Concomitant]
     Active Substance: LEVOMEPROMAZINE
     Dosage: SEDATIVE
     Route: 042
     Dates: start: 20180809

REACTIONS (1)
  - Dehydration [Recovered/Resolved]

NARRATIVE: CASE EVENT DATE: 20180804
